FAERS Safety Report 10958177 (Version 2)
Quarter: 2015Q2

REPORT INFORMATION
  Report Type: Spontaneous
  Country: FI (occurrence: FI)
  Receive Date: 20150326
  Receipt Date: 20150402
  Transmission Date: 20150821
  Serious: Yes (Hospitalization)
  Sender: FDA-Public Use
  Company Number: FI-PFIZER INC-2015100146

PATIENT
  Age: 67 Year
  Sex: Male

DRUGS (14)
  1. DOXIMED [Concomitant]
     Active Substance: DOXYCYCLINE
     Dosage: 100 MG 1X2
  2. ATORVASTATIN CALCIUM. [Concomitant]
     Active Substance: ATORVASTATIN CALCIUM
     Dosage: 20 MG, 1X/DAY
  3. JANUVIA [Concomitant]
     Active Substance: SITAGLIPTIN PHOSPHATE
     Dosage: 100 MG, 1X/DAY
  4. AMLODIPINE [Concomitant]
     Active Substance: AMLODIPINE BESYLATE
     Dosage: 5 MG, 1X/DAY
  5. PARACETAMOL ^BOOTS^ [Concomitant]
     Dosage: 1 G 1X3
  6. CARDACE [Concomitant]
     Active Substance: RAMIPRIL
     Dosage: 5 MG, 1X/DAY
  7. SOMAC [Concomitant]
     Active Substance: PANTOPRAZOLE SODIUM
     Dosage: 40 MG, UNK
  8. DEXAMETHASONE ACETATE [Concomitant]
     Active Substance: DEXAMETHASONE ACETATE
     Dosage: 4.5 MG, DAILY
  9. TRILEPTAL [Concomitant]
     Active Substance: OXCARBAZEPINE
     Dosage: 600 MG+ 600 MG
  10. PRO-EPANUTIN [Suspect]
     Active Substance: FOSPHENYTOIN\FOSPHENYTOIN SODIUM
     Indication: EPILEPSY
     Dosage: 75 MG/ML, UNK
     Route: 042
     Dates: start: 20141030, end: 20141030
  11. HYDANTIN [Suspect]
     Active Substance: PHENYTOIN
     Dosage: 150 MGX1-2
     Route: 048
     Dates: start: 20141101, end: 20150106
  12. METFORMIN ^COX^ [Concomitant]
     Dosage: 500 MG 1X2,
  13. PRIMASPAN [Concomitant]
     Dosage: 1
  14. CARDACE COMP [Concomitant]
     Dosage: 2.5 MG/12.5 MG,  DAILY

REACTIONS (2)
  - Drug reaction with eosinophilia and systemic symptoms [Recovering/Resolving]
  - Interstitial lung disease [Recovered/Resolved]

NARRATIVE: CASE EVENT DATE: 20141107
